FAERS Safety Report 5637137-5 (Version None)
Quarter: 2008Q1

REPORT INFORMATION
  Report Type: 
  Country: None (occurrence: None)
  Receive Date: 20080225
  Receipt Date: 20071120
  Transmission Date: 20080703
  Serious: No
  Sender: FDA-Public Use
  Company Number: US-BRISTOL-MYERS SQUIBB COMPANY-13988381

PATIENT
  Sex: Female
  Weight: 76 kg

DRUGS (3)
  1. GLUCOPHAGE [Suspect]
     Dosage: 500 MG TWICE DAILY SINCE 1998-1999, 2 YEARS AGO DOSE INCREASED TO 1000 MG
     Route: 048
  2. LISINOPRIL [Concomitant]
  3. DILTIAZEM CD [Concomitant]

REACTIONS (1)
  - DIARRHOEA [None]
